FAERS Safety Report 9133698 (Version 3)
Quarter: 2013Q1

REPORT INFORMATION
  Report Type: Spontaneous
  Country: NL (occurrence: NL)
  Receive Date: 20130303
  Receipt Date: 20130327
  Transmission Date: 20140127
  Serious: Yes (Life-Threatening, Hospitalization, Other)
  Sender: FDA-Public Use
  Company Number: NL-UCBSA-079468

PATIENT
  Age: 47 None
  Sex: Female

DRUGS (12)
  1. CIMZIA [Suspect]
     Indication: RHEUMATOID ARTHRITIS
     Route: 058
     Dates: start: 201203, end: 201302
  2. METHOTREXATE [Suspect]
     Indication: RHEUMATOID ARTHRITIS
     Route: 048
     Dates: start: 2010
  3. FOLIC ACID [Concomitant]
     Dates: start: 2010
  4. PREDNISONE [Concomitant]
     Indication: RHEUMATOID ARTHRITIS
  5. PREDNISONE [Concomitant]
     Indication: RHEUMATOID ARTHRITIS
     Route: 048
     Dates: start: 2012
  6. TRAMADOL [Concomitant]
     Indication: RHEUMATOID ARTHRITIS
     Dosage: 4 TABLETS PER DAY
     Route: 048
  7. OXAZEPAM [Concomitant]
     Indication: DEPRESSION
     Dosage: 3 TABLETS PER DAY
  8. OXAZEPAM [Concomitant]
     Indication: PANIC ATTACK
     Dosage: 3 TABLETS PER DAY
  9. HUMIRA [Concomitant]
     Indication: RHEUMATOID ARTHRITIS
     Dosage: STARTED IN SUMMER 2012
     Dates: start: 2012, end: 201209
  10. ENBREL [Concomitant]
     Indication: RHEUMATOID ARTHRITIS
     Dates: start: 201011, end: 201104
  11. ENBREL [Concomitant]
     Indication: RHEUMATOID ARTHRITIS
     Dates: start: 2011, end: 2011
  12. ENBREL [Concomitant]
     Indication: RHEUMATOID ARTHRITIS
     Dates: start: 201209, end: 201210

REACTIONS (5)
  - Glioblastoma [Not Recovered/Not Resolved]
  - Fall [Recovered/Resolved]
  - General physical condition abnormal [Unknown]
  - Weight increased [Not Recovered/Not Resolved]
  - Drug ineffective [Unknown]
